FAERS Safety Report 17416334 (Version 1)
Quarter: 2020Q1

REPORT INFORMATION
  Report Type: Spontaneous
  Country: US (occurrence: US)
  Receive Date: 20200130
  Receipt Date: 20200130
  Transmission Date: 20200409
  Serious: Yes (Life-Threatening)
  Sender: FDA-Public Use
  Company Number: None

PATIENT
  Age: 56 Year
  Sex: Female

DRUGS (12)
  1. HYDROXYCHLOR [Concomitant]
     Active Substance: HYDROXYCHLOROQUINE
  2. LEVOTHYROXIN [Concomitant]
     Active Substance: LEVOTHYROXINE
  3. TRAZODONE [Concomitant]
     Active Substance: TRAZODONE HYDROCHLORIDE
  4. AMITIZA [Concomitant]
     Active Substance: LUBIPROSTONE
  5. FOLIC ACID. [Concomitant]
     Active Substance: FOLIC ACID
  6. RANITIDINE. [Concomitant]
     Active Substance: RANITIDINE
  7. METHOTREXATE. [Concomitant]
     Active Substance: METHOTREXATE
  8. DULOXETINE. [Concomitant]
     Active Substance: DULOXETINE
  9. ENBREL [Suspect]
     Active Substance: ETANERCEPT
     Indication: RHEUMATOID ARTHRITIS
     Dosage: ?          OTHER DOSE:1 PEN;?
     Route: 058
     Dates: start: 20190210
  10. NAPROXEN. [Concomitant]
     Active Substance: NAPROXEN
  11. SPIRONOLACT [Concomitant]
     Active Substance: SPIRONOLACTONE
  12. ZOLPIDEM [Concomitant]
     Active Substance: ZOLPIDEM TARTRATE

REACTIONS (2)
  - Surgery [None]
  - Therapy cessation [None]

NARRATIVE: CASE EVENT DATE: 20200116
